FAERS Safety Report 23839376 (Version 1)
Quarter: 2024Q2

REPORT INFORMATION
  Report Type: Spontaneous
  Country: FR (occurrence: FR)
  Receive Date: 20240509
  Receipt Date: 20240509
  Transmission Date: 20240716
  Serious: Yes (Hospitalization, Other)
  Sender: FDA-Public Use
  Company Number: FR-CELGENE-FRA-20210406900

PATIENT
  Age: 79 Year
  Sex: Female

DRUGS (41)
  1. AZACITIDINE [Suspect]
     Active Substance: AZACITIDINE
     Indication: Acute myeloid leukaemia
     Dosage: FREQUENCY TEXT: NOT PROVIDED
     Route: 058
     Dates: start: 20210413
  2. AZACITIDINE [Suspect]
     Active Substance: AZACITIDINE
     Route: 048
     Dates: start: 20210413, end: 20210413
  3. AZACITIDINE [Suspect]
     Active Substance: AZACITIDINE
     Route: 048
     Dates: start: 20210414
  4. AZACITIDINE [Suspect]
     Active Substance: AZACITIDINE
     Route: 048
     Dates: start: 20210415
  5. AZACITIDINE [Suspect]
     Active Substance: AZACITIDINE
     Route: 058
     Dates: start: 20210413
  6. AZACITIDINE [Suspect]
     Active Substance: AZACITIDINE
     Route: 042
     Dates: start: 20210413
  7. VENETOCLAX [Suspect]
     Active Substance: VENETOCLAX
     Indication: Acute myeloid leukaemia
     Dosage: FREQUENCY TEXT: NOT PROVIDED
     Route: 048
     Dates: start: 20210413
  8. VENETOCLAX [Suspect]
     Active Substance: VENETOCLAX
     Dosage: FREQUENCY TEXT: NOT PROVIDED
     Route: 048
     Dates: start: 20210413
  9. VENETOCLAX [Suspect]
     Active Substance: VENETOCLAX
     Dosage: FREQUENCY TEXT: NOT PROVIDED
     Route: 042
     Dates: start: 20210413
  10. VENETOCLAX [Suspect]
     Active Substance: VENETOCLAX
     Dosage: FREQUENCY TEXT: NOT PROVIDED
     Route: 048
     Dates: start: 20210414, end: 20210414
  11. VENETOCLAX [Suspect]
     Active Substance: VENETOCLAX
     Dosage: FREQUENCY TEXT: NOT PROVIDED
     Route: 048
     Dates: start: 20210414, end: 20210414
  12. VENETOCLAX [Suspect]
     Active Substance: VENETOCLAX
     Dosage: FREQUENCY TEXT: NOT PROVIDED
     Route: 058
     Dates: start: 20210413
  13. PEVONEDISTAT [Suspect]
     Active Substance: PEVONEDISTAT
     Indication: Acute myeloid leukaemia
     Dosage: FREQUENCY TEXT: NOT PROVIDED
     Route: 042
     Dates: start: 20210413
  14. PEVONEDISTAT [Suspect]
     Active Substance: PEVONEDISTAT
     Dosage: FREQUENCY TEXT: NOT PROVIDED
     Route: 058
     Dates: start: 20210413, end: 20210413
  15. PEVONEDISTAT [Suspect]
     Active Substance: PEVONEDISTAT
     Dosage: FREQUENCY TEXT: NOT PROVIDED
     Route: 048
     Dates: start: 20210415
  16. PEVONEDISTAT [Suspect]
     Active Substance: PEVONEDISTAT
     Dosage: FREQUENCY TEXT: NOT PROVIDED
     Route: 048
     Dates: start: 20210413
  17. PIPERACILLIN SODIUM\TAZOBACTAM SODIUM [Concomitant]
     Active Substance: PIPERACILLIN SODIUM\TAZOBACTAM SODIUM
     Indication: Product used for unknown indication
     Dosage: FREQUENCY TEXT: NOT PROVIDED
     Dates: start: 20210402, end: 20210420
  18. MOVICOL [Concomitant]
     Active Substance: POLYETHYLENE GLYCOL 3350\POTASSIUM CHLORIDE\SODIUM BICARBONATE\SODIUM CHLORIDE
     Indication: Constipation
     Dosage: FREQUENCY TEXT: NOT PROVIDED
  19. TRAMADOL [Concomitant]
     Active Substance: TRAMADOL\TRAMADOL HYDROCHLORIDE
     Indication: Product used for unknown indication
     Dosage: FREQUENCY TEXT: NOT PROVIDED
     Dates: start: 20210410, end: 20210414
  20. AMBISOME [Concomitant]
     Active Substance: AMPHOTERICIN B
     Indication: Product used for unknown indication
     Dosage: FREQUENCY TEXT: NOT PROVIDED
     Dates: start: 20210409, end: 20210409
  21. POLARAMINE [Concomitant]
     Active Substance: DEXCHLORPHENIRAMINE MALEATE
     Indication: Product used for unknown indication
     Dosage: FREQUENCY TEXT: NOT PROVIDED
     Dates: start: 20210409, end: 20210411
  22. ISAVUCONAZOLE [Concomitant]
     Active Substance: ISAVUCONAZOLE
     Indication: Product used for unknown indication
     Dosage: FREQUENCY TEXT: NOT PROVIDED
     Dates: start: 20210412, end: 20211125
  23. TRANXENE [Concomitant]
     Active Substance: CLORAZEPATE DIPOTASSIUM
     Indication: Product used for unknown indication
     Dosage: FREQUENCY TEXT: NOT PROVIDED
     Dates: start: 20210413, end: 20210414
  24. POTASSIUM CHLORIDE [Concomitant]
     Active Substance: POTASSIUM CHLORIDE
     Indication: Product used for unknown indication
     Dosage: FREQUENCY TEXT: NOT PROVIDED
     Dates: start: 20210409, end: 20210420
  25. PRIMPERAN [Concomitant]
     Active Substance: METOCLOPRAMIDE HYDROCHLORIDE
     Indication: Product used for unknown indication
     Dosage: FREQUENCY TEXT: NOT PROVIDED
     Dates: start: 20210415, end: 20210418
  26. TITANOREINE [CHONDRUS CRISPUS EXTRACT;TITANIUM DIOXIDE;ZINC OXIDE] [Concomitant]
     Indication: Product used for unknown indication
     Dosage: FREQUENCY TEXT: NOT PROVIDED
  27. CALCIUM CARBONATE\CHOLECALCIFEROL [Concomitant]
     Active Substance: CALCIUM CARBONATE\CHOLECALCIFEROL
     Indication: Product used for unknown indication
     Dosage: FREQUENCY TEXT: NOT PROVIDED
  28. OXAZEPAM [Concomitant]
     Active Substance: OXAZEPAM
     Indication: Product used for unknown indication
     Dosage: FREQUENCY TEXT: NOT PROVIDED
  29. FASTURTEC [Concomitant]
     Active Substance: RASBURICASE
     Indication: Product used for unknown indication
     Dosage: FREQUENCY TEXT: NOT PROVIDED
     Dates: start: 20210401, end: 20210414
  30. FASTURTEC [Concomitant]
     Active Substance: RASBURICASE
     Indication: Pulmonary oedema
     Dosage: FREQUENCY TEXT: NOT PROVIDED
     Dates: start: 202104
  31. VORICONAZOLE [Concomitant]
     Active Substance: VORICONAZOLE
     Indication: Product used for unknown indication
     Dosage: FREQUENCY TEXT: NOT PROVIDED
     Dates: start: 20210402, end: 20210408
  32. HYDROXYUREA [Concomitant]
     Active Substance: HYDROXYUREA
     Indication: Product used for unknown indication
     Dosage: FREQUENCY TEXT: NOT PROVIDED
     Dates: start: 20210318, end: 20210408
  33. AMITRIPTYLINE HYDROCHLORIDE [Concomitant]
     Active Substance: AMITRIPTYLINE HYDROCHLORIDE
     Indication: Product used for unknown indication
     Dosage: FREQUENCY TEXT: NOT PROVIDED
     Dates: start: 20210401
  34. LIDOCAINE [Concomitant]
     Active Substance: LIDOCAINE
     Indication: Product used for unknown indication
     Dosage: FREQUENCY TEXT: NOT PROVIDED
     Dates: start: 20210402, end: 20210420
  35. HYDROCORTISONE [Concomitant]
     Active Substance: HYDROCORTISONE
     Indication: Transfusion
     Dosage: FREQUENCY TEXT: NOT PROVIDED
     Dates: start: 20210414, end: 20210414
  36. HYDROCORTISONE [Concomitant]
     Active Substance: HYDROCORTISONE
     Dosage: FREQUENCY TEXT: NOT PROVIDED
     Dates: start: 20210428
  37. FUROSEMIDE [Concomitant]
     Active Substance: FUROSEMIDE
     Indication: Transfusion
     Dosage: FREQUENCY TEXT: NOT PROVIDED
     Dates: start: 20210414, end: 20210415
  38. FUROSEMIDE [Concomitant]
     Active Substance: FUROSEMIDE
     Indication: Tumour lysis syndrome
  39. ONDANSETRON [Concomitant]
     Active Substance: ONDANSETRON
     Indication: Procedural nausea
     Dosage: FREQUENCY TEXT: NOT PROVIDED
     Dates: start: 20210413
  40. ONDANSETRON [Concomitant]
     Active Substance: ONDANSETRON
     Indication: Prophylaxis of nausea and vomiting
  41. POLYETHYLENE GLYCOLS [Concomitant]
     Active Substance: POLYETHYLENE GLYCOLS
     Indication: Constipation
     Dosage: FREQUENCY TEXT: NOT PROVIDED

REACTIONS (3)
  - Pulmonary oedema [Recovered/Resolved]
  - Acute coronary syndrome [Recovered/Resolved]
  - Acute kidney injury [Recovered/Resolved]

NARRATIVE: CASE EVENT DATE: 20210416
